FAERS Safety Report 22611537 (Version 1)
Quarter: 2023Q2

REPORT INFORMATION
  Report Type: Spontaneous
  Country: CN (occurrence: CN)
  Receive Date: 20230616
  Receipt Date: 20230616
  Transmission Date: 20230721
  Serious: Yes (Hospitalization)
  Sender: FDA-Public Use
  Company Number: CN-TAIHOP-2023-004628

PATIENT
  Age: 60 Year
  Sex: Male
  Weight: 66.9 kg

DRUGS (5)
  1. TIPIRACIL HYDROCHLORIDE\TRIFLURIDINE [Suspect]
     Active Substance: TIPIRACIL HYDROCHLORIDE\TRIFLURIDINE
     Indication: Rectal cancer
     Dosage: CYCLE UNKNOWN
     Route: 048
     Dates: start: 20230311, end: 20230313
  2. IRINOTECAN HYDROCHLORIDE [Suspect]
     Active Substance: IRINOTECAN HYDROCHLORIDE
     Indication: Rectal cancer
     Dosage: CYCLE UNKNOWN
     Route: 042
     Dates: start: 20230311, end: 20230311
  3. CETUXIMAB [Concomitant]
     Active Substance: CETUXIMAB
     Indication: Rectal cancer
     Dosage: SOLUTION
     Route: 042
     Dates: start: 20230311, end: 20230311
  4. SODIUM CHLORIDE [Concomitant]
     Active Substance: SODIUM CHLORIDE
     Indication: Vehicle solution use
     Route: 042
     Dates: start: 20230311, end: 20230311
  5. SODIUM CHLORIDE [Concomitant]
     Active Substance: SODIUM CHLORIDE
     Route: 042
     Dates: start: 20230311, end: 20230311

REACTIONS (4)
  - Nausea [Recovering/Resolving]
  - Dizziness [Recovering/Resolving]
  - Vomiting [Recovering/Resolving]
  - Diarrhoea [Recovering/Resolving]

NARRATIVE: CASE EVENT DATE: 20230313
